FAERS Safety Report 7968004-X (Version None)
Quarter: 2011Q4

REPORT INFORMATION
  Report Type: 
  Country: None (occurrence: None)
  Receive Date: 20111209
  Receipt Date: 20111202
  Transmission Date: 20120403
  Serious: Yes (Other)
  Sender: FDA-Public Use
  Company Number: US-UCBSA-046986

PATIENT
  Age: 29 Year
  Sex: Female
  Weight: 79.37 kg

DRUGS (3)
  1. LORAZEPAM [Concomitant]
     Indication: PROPHYLAXIS
     Route: 048
     Dates: start: 20110512
  2. LEVETIRACETAM [Concomitant]
     Indication: CONVULSION
     Dates: end: 20110101
  3. VIMPAT [Suspect]
     Indication: PETIT MAL EPILEPSY
     Route: 048
     Dates: start: 20090101

REACTIONS (1)
  - CONVULSION [None]
